FAERS Safety Report 7024459-9 (Version None)
Quarter: 2010Q3

REPORT INFORMATION
  Report Type: 
  Country: None (occurrence: None)
  Receive Date: 20100929
  Receipt Date: 20100917
  Transmission Date: 20110219
  Serious: Yes (Other)
  Sender: FDA-Public Use
  Company Number: 2010090061

PATIENT
  Sex: Male

DRUGS (2)
  1. TALOXA (FELBATMATE) [Suspect]
  2. ORIFIRIL (VALPROIC ACID) [Suspect]

REACTIONS (2)
  - EPILEPSY [None]
  - INTENTIONAL SELF-INJURY [None]
